FAERS Safety Report 9519503 (Version 4)
Quarter: 2014Q1

REPORT INFORMATION
  Report Type: Report from Study
  Country: US (occurrence: US)
  Receive Date: 20130912
  Receipt Date: 20140311
  Transmission Date: 20141002
  Serious: Yes (Death, Hospitalization)
  Sender: FDA-Public Use
  Company Number: US-ROCHE-1272648

PATIENT
  Age: 83 Year
  Sex: Male

DRUGS (2)
  1. NUTROPIN [Suspect]
     Indication: HYPOPITUITARISM
     Route: 058
     Dates: end: 201309
  2. NUTROPIN AQ [Suspect]
     Indication: PRODUCT USED FOR UNKNOWN INDICATION
     Route: 058

REACTIONS (3)
  - Neoplasm malignant [Not Recovered/Not Resolved]
  - Drug dose omission [Unknown]
  - Death [Fatal]
